FAERS Safety Report 10162235 (Version 1)
Quarter: 2014Q2

REPORT INFORMATION
  Report Type: Spontaneous
  Country: KR (occurrence: None)
  Receive Date: 20140507
  Receipt Date: 20140507
  Transmission Date: 20141212
  Serious: Yes (Death)
  Sender: FDA-Public Use
  Company Number: B0989863A

PATIENT
  Sex: 0

DRUGS (5)
  1. ETOPOSIDE [Suspect]
     Indication: BRAIN NEOPLASM
  2. MELPHALAN [Suspect]
     Indication: BRAIN NEOPLASM
  3. CARBOPLATIN [Suspect]
  4. THIOTEPA [Suspect]
     Indication: BRAIN NEOPLASM
  5. CYCLOPHOSPHAMIDE [Suspect]
     Indication: BRAIN NEOPLASM

REACTIONS (1)
  - Asphyxia [None]
